FAERS Safety Report 7630324-6 (Version None)
Quarter: 2011Q3

REPORT INFORMATION
  Report Type: 
  Country: None (occurrence: None)
  Receive Date: 20110722
  Receipt Date: 20110712
  Transmission Date: 20111222
  Serious: Yes (Hospitalization)
  Sender: FDA-Public Use
  Company Number: US-BAYER-2011-012062

PATIENT
  Age: 23 Year
  Sex: Female
  Weight: 99.773 kg

DRUGS (4)
  1. YAZ [Suspect]
     Indication: ACNE
  2. PLAN B [Concomitant]
     Indication: CONTRACEPTION
     Dosage: UNK
     Route: 048
     Dates: start: 20100222
  3. YAZ [Suspect]
     Indication: CONTRACEPTION
     Dosage: UNK
     Dates: start: 20100301, end: 20100421
  4. IBUPROFEN (ADVIL) [Concomitant]
     Indication: HEADACHE

REACTIONS (6)
  - CEREBRAL HAEMORRHAGE [None]
  - FEAR [None]
  - CEREBRAL THROMBOSIS [None]
  - PAIN [None]
  - EMOTIONAL DISTRESS [None]
  - ANXIETY [None]
